FAERS Safety Report 9219030 (Version 1)
Quarter: 2013Q2

REPORT INFORMATION
  Report Type: Spontaneous
  Country: PL (occurrence: PL)
  Receive Date: 20130409
  Receipt Date: 20130409
  Transmission Date: 20140414
  Serious: Yes (Hospitalization, Other)
  Sender: FDA-Public Use
  Company Number: PHHY2013PL032635

PATIENT
  Age: 11 Year
  Sex: Male

DRUGS (7)
  1. CICLOSPORIN [Suspect]
     Indication: NEPHROTIC SYNDROME
  2. MYCOPHENOLATE MOFETIL [Suspect]
     Indication: NEPHROTIC SYNDROME
  3. PREDNISONE [Suspect]
     Indication: NEPHROTIC SYNDROME
  4. RITUXIMAB [Suspect]
     Indication: NEPHROTIC SYNDROME
     Dosage: 2 DF, QW
  5. STEROIDS [Suspect]
     Indication: NEPHROTIC SYNDROME
  6. CYCLOPHOSPHAMIDE [Suspect]
     Indication: NEPHROTIC SYNDROME
  7. LEVAMISOLE [Suspect]
     Indication: NEPHROTIC SYNDROME

REACTIONS (11)
  - Pneumocystis jirovecii pneumonia [Unknown]
  - Pyrexia [Unknown]
  - Tachycardia [Unknown]
  - Fatigue [Unknown]
  - Dyspnoea [Recovering/Resolving]
  - Respiratory failure [Unknown]
  - General physical health deterioration [Recovering/Resolving]
  - Stomatitis [Unknown]
  - Candida infection [Unknown]
  - Drug dependence [Unknown]
  - Toxicity to various agents [Unknown]
